FAERS Safety Report 19434194 (Version 1)
Quarter: 2021Q2

REPORT INFORMATION
  Report Type: Spontaneous
  Country: US (occurrence: US)
  Receive Date: 20210617
  Receipt Date: 20210617
  Transmission Date: 20210717
  Serious: No
  Sender: FDA-Public Use
  Company Number: US-ROCHE-2572863

PATIENT
  Age: 73 Year
  Sex: Female
  Weight: 61.29 kg

DRUGS (3)
  1. ACTEMRA [Suspect]
     Active Substance: TOCILIZUMAB
     Indication: GIANT CELL ARTERITIS
     Route: 058
     Dates: start: 20190502
  2. METHOTREXATE. [Concomitant]
     Active Substance: METHOTREXATE
     Route: 065
     Dates: start: 20200228
  3. PREDNISONE. [Concomitant]
     Active Substance: PREDNISONE
     Route: 065

REACTIONS (9)
  - Pain [Unknown]
  - Oropharyngeal pain [Unknown]
  - Headache [Unknown]
  - Giant cell arteritis [Unknown]
  - Unevaluable event [Unknown]
  - Thermal burn [Unknown]
  - Illness [Unknown]
  - Polymyalgia rheumatica [Unknown]
  - Feeling abnormal [Unknown]

NARRATIVE: CASE EVENT DATE: 20191021
